FAERS Safety Report 17507899 (Version 10)
Quarter: 2020Q4

REPORT INFORMATION
  Report Type: Spontaneous
  Country: JP (occurrence: JP)
  Receive Date: 20200306
  Receipt Date: 20201203
  Transmission Date: 20210113
  Serious: Yes (Death, Other)
  Sender: FDA-Public Use
  Company Number: NVSJ2020JP000469

PATIENT
  Age: 49 Year
  Sex: Male

DRUGS (2)
  1. ACTEMRA [Suspect]
     Active Substance: TOCILIZUMAB
     Indication: CYTOKINE RELEASE SYNDROME
     Dosage: 480 MG
     Route: 065
     Dates: start: 20200109, end: 20200109
  2. KYMRIAH [Suspect]
     Active Substance: TISAGENLECLEUCEL
     Indication: DIFFUSE LARGE B-CELL LYMPHOMA RECURRENT
     Dosage: 1.5E8 CAR-POSITIVE VIABLE T CELLS
     Route: 041
     Dates: start: 20191231

REACTIONS (13)
  - VIth nerve paralysis [Not Recovered/Not Resolved]
  - Guillain-Barre syndrome [Not Recovered/Not Resolved]
  - Anti-ganglioside antibody positive [Not Recovered/Not Resolved]
  - Malignant neoplasm progression [Unknown]
  - Cytomegalovirus infection [Recovered/Resolved]
  - Death [Fatal]
  - Peripheral nerve lesion [Not Recovered/Not Resolved]
  - Diffuse large B-cell lymphoma recurrent [Unknown]
  - Cytokine release syndrome [Recovered/Resolved]
  - Platelet count decreased [Recovered/Resolved]
  - Red blood cell count decreased [Recovered/Resolved]
  - Pyrexia [Unknown]
  - White blood cell count decreased [Recovered/Resolved]

NARRATIVE: CASE EVENT DATE: 20191231
